FAERS Safety Report 4507480-1 (Version None)
Quarter: 2004Q4

REPORT INFORMATION
  Report Type: 
  Country: None (occurrence: None)
  Receive Date: 20041118
  Receipt Date: 20041109
  Transmission Date: 20050328
  Serious: Yes (Death, Hospitalization, Other)
  Sender: FDA-Public Use
  Company Number: 2004-09-0820

PATIENT
  Age: 53 Year
  Sex: Female
  Weight: 70 kg

DRUGS (2)
  1. VIRAFERONPEG [Suspect]
     Indication: HEPATITIS C
     Dosage: 103.2 MCG QWK; SUBCUTANEO
     Route: 058
     Dates: start: 20010404, end: 20020303
  2. REBETOL [Suspect]
     Indication: HEPATITIS C
     Dosage: 1000 MG QD ORAL
     Route: 048
     Dates: start: 20010404, end: 20020303

REACTIONS (25)
  - ANOREXIA [None]
  - ASCITES [None]
  - BLOOD PRESSURE DECREASED [None]
  - CIRCULATORY COLLAPSE [None]
  - COUGH [None]
  - CYTOLYTIC HEPATITIS [None]
  - FEBRILE BONE MARROW APLASIA [None]
  - GASTROINTESTINAL HAEMORRHAGE [None]
  - HAEMATEMESIS [None]
  - HAEMODYNAMIC INSTABILITY [None]
  - HEPATIC CIRRHOSIS [None]
  - HEPATIC FAILURE [None]
  - HEPATITIS C RNA POSITIVE [None]
  - JEJUNITIS [None]
  - LYMPHADENOPATHY [None]
  - MELAENA [None]
  - NON-HODGKIN'S LYMPHOMA [None]
  - OEDEMA [None]
  - PYREXIA [None]
  - RECTAL HAEMORRHAGE [None]
  - RENAL FAILURE [None]
  - SHOCK HAEMORRHAGIC [None]
  - STAPHYLOCOCCAL SEPSIS [None]
  - THROMBOCYTOPENIA [None]
  - WEIGHT DECREASED [None]
